FAERS Safety Report 9461849 (Version 3)
Quarter: 2014Q1

REPORT INFORMATION
  Report Type: Spontaneous
  Country: US (occurrence: US)
  Receive Date: 20130816
  Receipt Date: 20140321
  Transmission Date: 20141002
  Serious: Yes (Death, Hospitalization)
  Sender: FDA-Public Use
  Company Number: US-B.I. PHARMACEUTICALS,INC./RIDGEFIELD-2013-BI-25153BP

PATIENT
  Age: 86 Year
  Sex: Male
  Weight: 63.49 kg

DRUGS (10)
  1. PRADAXA [Suspect]
     Indication: ATRIAL FIBRILLATION
     Dosage: 300 MG
     Route: 048
     Dates: start: 20110426, end: 20110802
  2. COREG [Concomitant]
     Dosage: 6.25 MG
     Route: 048
  3. ZOCOR [Concomitant]
     Dosage: 40 MG
     Route: 065
  4. RAMIPRIL [Concomitant]
     Dosage: 2.5 MG
     Route: 065
  5. PROTONIX [Concomitant]
     Indication: GASTROOESOPHAGEAL REFLUX DISEASE
     Dosage: 40 MG
     Route: 065
  6. LASIX [Concomitant]
     Dosage: 40 MG
     Route: 065
  7. CYMBALTA [Concomitant]
     Dosage: 60 MG
     Route: 065
  8. CITRACAL [Concomitant]
     Dosage: 630 MG
     Route: 065
  9. NITRODUR [Concomitant]
     Dosage: 0.2 MG
     Route: 061
  10. AMBIEN [Concomitant]
     Dosage: 5 MG
     Route: 048

REACTIONS (4)
  - Lower gastrointestinal haemorrhage [Fatal]
  - Haemorrhagic anaemia [Unknown]
  - Fall [Unknown]
  - Contusion [Unknown]
